FAERS Safety Report 6806978-0 (Version None)
Quarter: 2010Q2

REPORT INFORMATION
  Report Type: 
  Country: None (occurrence: None)
  Receive Date: 20100629
  Receipt Date: 20080606
  Transmission Date: 20101027
  Serious: Yes (Other)
  Sender: FDA-Public Use
  Company Number: US-PFIZER INC-2008048634

PATIENT
  Sex: Female
  Weight: 79.545 kg

DRUGS (2)
  1. ARTHROTEC [Suspect]
     Indication: BACK PAIN
  2. ANTIHYPERTENSIVES [Concomitant]

REACTIONS (1)
  - RENAL FAILURE [None]
